FAERS Safety Report 10258469 (Version 1)
Quarter: 2014Q2

REPORT INFORMATION
  Report Type: Spontaneous
  Country: US (occurrence: US)
  Receive Date: 20140625
  Receipt Date: 20140625
  Transmission Date: 20141212
  Serious: No
  Sender: FDA-Public Use
  Company Number: US-009507513-1406USA005106

PATIENT
  Sex: Male

DRUGS (1)
  1. MIRALAX [Suspect]
     Indication: COLON OPERATION
     Dosage: UNK UNK, UNKNOWN
     Route: 048
     Dates: start: 20140604

REACTIONS (2)
  - Off label use [Unknown]
  - Drug ineffective [Unknown]
